FAERS Safety Report 8356564-9 (Version None)
Quarter: 2012Q2

REPORT INFORMATION
  Report Type: 
  Country: None (occurrence: None)
  Receive Date: 20120514
  Receipt Date: 20120507
  Transmission Date: 20120825
  Serious: Yes (Other)
  Sender: FDA-Public Use
  Company Number: PHHY2012JP030881

PATIENT
  Age: 61 Year
  Sex: Female

DRUGS (3)
  1. DIOVAN [Suspect]
     Indication: HYPERTENSION
     Dosage: 80 MG, UNK
     Route: 048
     Dates: end: 20120402
  2. TRICHLORMETHIAZIDE [Concomitant]
     Dosage: 1 MG, UNK
     Dates: end: 20120402
  3. ADALAT CC [Concomitant]
     Dosage: 40 MG, UNK
     Dates: end: 20120402

REACTIONS (1)
  - COLITIS ISCHAEMIC [None]
